FAERS Safety Report 8194328-X (Version None)
Quarter: 2012Q1

REPORT INFORMATION
  Report Type: 
  Country: None (occurrence: None)
  Receive Date: 20120308
  Receipt Date: 20120305
  Transmission Date: 20120608
  Serious: No
  Sender: FDA-Public Use
  Company Number: US-PFIZER INC-2012059613

PATIENT
  Sex: Female
  Weight: 53.1 kg

DRUGS (5)
  1. LEVOTHYROXINE SODIUM [Suspect]
     Indication: HYPOTHYROIDISM
     Dosage: 0.05 MG, DAILY
     Dates: start: 20110101
  2. LEVOTHYROXINE SODIUM [Suspect]
     Indication: ALOPECIA
  3. LEVOTHYROXINE SODIUM [Suspect]
     Indication: WEIGHT CONTROL
  4. VITAMIN D [Concomitant]
     Dosage: UNK
  5. LEVOTHYROXINE SODIUM [Suspect]
     Indication: FATIGUE

REACTIONS (1)
  - ALOPECIA [None]
